FAERS Safety Report 25374290 (Version 1)
Quarter: 2025Q2

REPORT INFORMATION
  Report Type: Spontaneous
  Country: JP (occurrence: JP)
  Receive Date: 20250529
  Receipt Date: 20250529
  Transmission Date: 20250717
  Serious: Yes (Other)
  Sender: STRIDES
  Company Number: None

PATIENT
  Age: 23 Year
  Sex: Female

DRUGS (2)
  1. IBUPROFEN [Suspect]
     Active Substance: IBUPROFEN
     Indication: Dysmenorrhoea
     Route: 065
  2. ACETAMINOPHEN [Concomitant]
     Active Substance: ACETAMINOPHEN
     Indication: Dysmenorrhoea
     Route: 065

REACTIONS (2)
  - Skin hyperpigmentation [Recovering/Resolving]
  - Fixed eruption [Recovering/Resolving]
